FAERS Safety Report 13922121 (Version 1)
Quarter: 2017Q3

REPORT INFORMATION
  Report Type: Report from Study
  Country: US (occurrence: US)
  Receive Date: 20170830
  Receipt Date: 20170830
  Transmission Date: 20171127
  Serious: No
  Sender: FDA-Public Use
  Company Number: US-TEVA-794284ACC

PATIENT

DRUGS (2)
  1. BENDAMUSTINE HYDROCHLORIDE. [Suspect]
     Active Substance: BENDAMUSTINE HYDROCHLORIDE
     Indication: NON-HODGKIN^S LYMPHOMA
     Dosage: (ON DAYS 1 AND 2 EVERY 28 DAYS FOR UP TO 8 CYCLES)
     Route: 042
  2. OFATUMUMAB [Suspect]
     Active Substance: OFATUMUMAB
     Indication: NON-HODGKIN^S LYMPHOMA
     Dosage: (ON DAY 1 OF WEEKS 2, 3, AND 4 OF CYCLE 1 AND ON DAY 1 OF CYCLES 2-8)
     Route: 042

REACTIONS (1)
  - Infusion related reaction [Unknown]
